FAERS Safety Report 4432135-1 (Version None)
Quarter: 2004Q3

REPORT INFORMATION
  Report Type: 
  Country: None (occurrence: None)
  Receive Date: 20040820
  Receipt Date: 20040806
  Transmission Date: 20050211
  Serious: Yes (Death, Other)
  Sender: FDA-Public Use
  Company Number: 2004051333

PATIENT
  Sex: Male

DRUGS (13)
  1. DOFETILIDE (DOFETILIDE) [Suspect]
     Indication: ATRIAL FIBRILLATION
     Dosage: 1000 MCG (500 MCG, 2 IN 1 D), ORAL
     Route: 048
     Dates: start: 20020725
  2. WARFARIN (WARFARIN) [Concomitant]
  3. LEVOTHYROXINE SODIUM [Concomitant]
  4. GLYBURIDE [Concomitant]
  5. FUROSEMIDE [Concomitant]
  6. POTASSIUM (POTASSIUM) [Concomitant]
  7. ATORVASTATIN CALCIUM [Concomitant]
  8. METFORMIN HCL [Concomitant]
  9. BISOPROLOL FUMARATE [Concomitant]
  10. LOSARTAN (LOSARTAN) [Concomitant]
  11. SALBUTAMOL (SALBUTAMOL) [Concomitant]
  12. FLUTICASONE PROPIONATE [Concomitant]
  13. SPIRONOLACTONE [Concomitant]

REACTIONS (2)
  - LUNG NEOPLASM MALIGNANT [None]
  - PNEUMONIA [None]
